FAERS Safety Report 8922303 (Version 2)
Quarter: 2013Q1

REPORT INFORMATION
  Report Type: Spontaneous
  Country: SG (occurrence: SG)
  Receive Date: 20121126
  Receipt Date: 20130103
  Transmission Date: 20140127
  Serious: Yes (Hospitalization)
  Sender: FDA-Public Use
  Company Number: SG-009507513-1211SGP008386

PATIENT
  Age: 53 Year
  Sex: Male

DRUGS (7)
  1. TEMOZOLOMIDE [Suspect]
     Indication: GLIOBLASTOMA MULTIFORME
     Dosage: 75 MG/M2, QD
     Route: 048
  2. TEMOZOLOMIDE [Suspect]
     Dosage: 150 MG/M2, QD
     Route: 048
  3. THERAPEUTIC RADIOPHARMACEUTICAL (UNSPECIFIED) [Suspect]
     Indication: GLIOBLASTOMA MULTIFORME
     Dosage: TOTAL DOSE OF 54 GY IN27 FRACTIONS
  4. DEXAMETHASONE [Concomitant]
     Dosage: 4-8 MG/DAY
     Route: 048
  5. DEXAMETHASONE [Concomitant]
     Dosage: 4 MG, QD
     Route: 048
  6. SULFAMETHOXAZOLE [Concomitant]
     Indication: PROPHYLAXIS
  7. TRIMETHOPRIM [Concomitant]
     Indication: PROPHYLAXIS

REACTIONS (2)
  - Cryptococcosis [Recovering/Resolving]
  - Lymphocyte count decreased [Unknown]
